FAERS Safety Report 16281166 (Version 3)
Quarter: 2019Q4

REPORT INFORMATION
  Report Type: Spontaneous
  Country: FR (occurrence: FR)
  Receive Date: 20190507
  Receipt Date: 20191204
  Transmission Date: 20200122
  Serious: Yes (Life-Threatening, Hospitalization)
  Sender: FDA-Public Use
  Company Number: FR-ASTRAZENECA-2019SE68516

PATIENT
  Age: 39 Year
  Sex: Female

DRUGS (5)
  1. SODIUM DIVALPROATE [Suspect]
     Active Substance: VALPROATE SODIUM
     Dosage: 18.5G UNKNOWN
     Route: 065
  2. DIAZEPAM. [Suspect]
     Active Substance: DIAZEPAM
     Dosage: 100.0MG UNKNOWN
     Route: 065
  3. ALPRAZOLAM. [Suspect]
     Active Substance: ALPRAZOLAM
     Dosage: 20.0MG UNKNOWN
     Route: 065
  4. PROPRANOLOL [Suspect]
     Active Substance: PROPRANOLOL HYDROCHLORIDE
     Dosage: 400.0MG UNKNOWN
     Route: 065
  5. QUETIAPINE. [Suspect]
     Active Substance: QUETIAPINE
     Indication: MAJOR DEPRESSION
     Dosage: 4.0G UNKNOWN
     Route: 048

REACTIONS (8)
  - Blood creatine phosphokinase increased [Unknown]
  - Heart rate decreased [Unknown]
  - Intentional overdose [Unknown]
  - Blood pressure systolic decreased [Unknown]
  - Lung disorder [Unknown]
  - Coma [Recovering/Resolving]
  - Toxicity to various agents [Unknown]
  - Sinus rhythm [Unknown]
